FAERS Safety Report 6277802-2 (Version None)
Quarter: 2009Q3

REPORT INFORMATION
  Report Type: 
  Country: None (occurrence: None)
  Receive Date: 20090722
  Receipt Date: 20090710
  Transmission Date: 20100115
  Serious: Yes (Other)
  Sender: FDA-Public Use
  Company Number: IE-ELI_LILLY_AND_COMPANY-IE200907002012

PATIENT
  Age: 65 Year
  Sex: Female

DRUGS (5)
  1. CYMBALTA [Suspect]
     Indication: FIBROMYALGIA
     Dosage: 60 MG, DAILY (1/D)
     Route: 048
     Dates: start: 20090604, end: 20090618
  2. NEXIUM [Concomitant]
  3. INEGY [Concomitant]
  4. ELTROXIN [Concomitant]
     Dosage: 10 UG, UNK
  5. PARAMOL /00116401/ [Concomitant]
     Dosage: 510 MG, UNK

REACTIONS (1)
  - MOUTH ULCERATION [None]
